FAERS Safety Report 6819620-X (Version None)
Quarter: 2010Q3

REPORT INFORMATION
  Report Type: 
  Country: None (occurrence: None)
  Receive Date: 20100701
  Receipt Date: 20100305
  Transmission Date: 20110219
  Serious: No
  Sender: FDA-Public Use
  Company Number: US-TEVA-227057USA

PATIENT
  Sex: Male

DRUGS (5)
  1. AZILECT [Suspect]
     Indication: PARKINSON'S DISEASE
     Route: 048
     Dates: start: 20100304
  2. AZILECT [Concomitant]
  3. UBIDECARENONE [Concomitant]
  4. ACETYLSALICYLIC ACID [Concomitant]
  5. GLUCOSAMINE W/CHONDROITIN SULFATE [Concomitant]

REACTIONS (10)
  - ABDOMINAL DISCOMFORT [None]
  - ANXIETY [None]
  - BLOOD PRESSURE INCREASED [None]
  - HYPOAESTHESIA [None]
  - MUSCLE SPASMS [None]
  - MUSCULOSKELETAL STIFFNESS [None]
  - PARAESTHESIA [None]
  - PARANOIA [None]
  - SPEECH DISORDER [None]
  - THOUGHT BLOCKING [None]
